FAERS Safety Report 10515670 (Version 1)
Quarter: 2014Q4

REPORT INFORMATION
  Report Type: Spontaneous
  Country: CH (occurrence: None)
  Receive Date: 20141009
  Receipt Date: 20141009
  Transmission Date: 20150528
  Serious: Yes (Hospitalization)
  Sender: FDA-Public Use
  Company Number: COR_00097_2014

PATIENT
  Age: 29 Year
  Sex: Male

DRUGS (4)
  1. CARBOPLATIN (CARBOPLATIN) [Suspect]
     Active Substance: CARBOPLATIN
     Indication: GERM CELL CANCER
     Dosage: (DF)
  2. BLEOMYCIN [Suspect]
     Active Substance: BLEOMYCIN SULFATE
     Indication: GERM CELL CANCER
     Dosage: (DF)?
  3. ETOPOSIDE (ETOPOSIDE) [Suspect]
     Active Substance: ETOPOSIDE
     Indication: GERM CELL CANCER
     Dosage: (DF)
  4. CISPLATIN (CISPLATIN) [Suspect]
     Active Substance: CISPLATIN
     Indication: GERM CELL CANCER
     Dosage: (DF)?

REACTIONS (4)
  - Cerebral venous thrombosis [None]
  - Cerebral haemorrhage [None]
  - Headache [None]
  - Epilepsy [None]
